FAERS Safety Report 11154805 (Version 1)
Quarter: 2015Q2

REPORT INFORMATION
  Report Type: Report from Study
  Country: IE (occurrence: IE)
  Receive Date: 20150602
  Receipt Date: 20150602
  Transmission Date: 20150821
  Serious: Yes (Hospitalization, Other)
  Sender: FDA-Public Use
  Company Number: IE-ALEXION PHARMACEUTICALS INC.-A201400085

PATIENT

DRUGS (7)
  1. SOLIRIS [Suspect]
     Active Substance: ECULIZUMAB
     Indication: PAROXYSMAL NOCTURNAL HAEMOGLOBINURIA
     Dosage: UNK
     Route: 042
  2. SOLIRIS [Suspect]
     Active Substance: ECULIZUMAB
     Dosage: 900 MG, Q2W
     Route: 042
     Dates: start: 20101229
  3. FOLIC ACID. [Concomitant]
     Active Substance: FOLIC ACID
     Indication: PRODUCT USED FOR UNKNOWN INDICATION
     Dosage: UNK
     Route: 065
  4. WARFARIN [Concomitant]
     Active Substance: WARFARIN
     Indication: PRODUCT USED FOR UNKNOWN INDICATION
     Dosage: 5 MG, QD
     Route: 065
     Dates: start: 20101229
  5. SOLIRIS [Suspect]
     Active Substance: ECULIZUMAB
     Dosage: 900 MG, Q2W
     Route: 042
     Dates: start: 20101229
  6. ERYTHROMYCIN. [Concomitant]
     Active Substance: ERYTHROMYCIN
     Indication: PROPHYLAXIS
     Dosage: UNK, QD
     Route: 065
  7. SOLIRIS [Suspect]
     Active Substance: ECULIZUMAB
     Dosage: 900 MG, Q2W
     Route: 042
     Dates: start: 20101229

REACTIONS (11)
  - Platelet count decreased [Not Recovered/Not Resolved]
  - Rhinorrhoea [Recovered/Resolved]
  - Transfusion [Recovered/Resolved]
  - Haemoglobin abnormal [Recovered/Resolved]
  - Kidney infection [Recovered/Resolved]
  - Nasopharyngitis [Recovered/Resolved]
  - Lower respiratory tract infection [Recovered/Resolved]
  - Cough [Recovered/Resolved]
  - Condition aggravated [Unknown]
  - Lower respiratory tract infection [Recovered/Resolved]
  - Drug ineffective [Unknown]

NARRATIVE: CASE EVENT DATE: 20140501
